FAERS Safety Report 10018021 (Version 1)
Quarter: 2014Q1

REPORT INFORMATION
  Report Type: Spontaneous
  Country: US (occurrence: None)
  Receive Date: 20140313
  Receipt Date: 20140313
  Transmission Date: 20141002
  Serious: Yes (Other)
  Sender: FDA-Public Use
  Company Number: None

PATIENT
  Age: 69 Year
  Sex: Male
  Weight: 65.77 kg

DRUGS (14)
  1. TROSPIUM [Suspect]
     Indication: POLLAKIURIA
     Route: 048
     Dates: start: 20131230, end: 20131230
  2. TIOTROPIUM [Concomitant]
  3. CETIRIZINE [Concomitant]
  4. CIPRO [Concomitant]
  5. TAMSULOS [Concomitant]
  6. METFORMIN [Concomitant]
  7. ATORVASTATIN [Concomitant]
  8. AMLODIPINE [Concomitant]
  9. FINASTERIDE [Concomitant]
  10. LACTULOSE [Concomitant]
  11. FLUTICASONE [Concomitant]
  12. MOMETASONE-FORMOTEROL [Concomitant]
  13. ALBUTEROL [Concomitant]
  14. VITAMIN D3 [Concomitant]

REACTIONS (1)
  - Urinary retention [None]
